FAERS Safety Report 4381980-X (Version None)
Quarter: 2004Q2

REPORT INFORMATION
  Report Type: 
  Country: None (occurrence: None)
  Receive Date: 20040603
  Receipt Date: 20030812
  Transmission Date: 20050107
  Serious: Yes (Life-Threatening, Hospitalization)
  Sender: FDA-Public Use
  Company Number: 200315128US

PATIENT
  Age: 73 Year
  Sex: Female

DRUGS (6)
  1. LOVENOX [Suspect]
     Indication: ACUTE CORONARY SYNDROME
     Dosage: 90 MG Q12H SC
     Route: 058
     Dates: start: 20030304, end: 20030312
  2. WARFARIN SODIUM [Concomitant]
  3. ASPIRIN [Concomitant]
  4. HYDROXYCHLOROQUINE PHOSPHATE (PLAQUENIL) [Concomitant]
  5. PREDNISONE [Concomitant]
  6. SYNTHROID [Concomitant]

REACTIONS (2)
  - CATHETER SITE HAEMORRHAGE [None]
  - CONTUSION [None]
